FAERS Safety Report 4431961-2 (Version None)
Quarter: 2004Q3

REPORT INFORMATION
  Report Type: 
  Country: None (occurrence: None)
  Receive Date: 20040819
  Receipt Date: 20040722
  Transmission Date: 20050211
  Serious: No
  Sender: FDA-Public Use
  Company Number: GB-SHR-04-024218

PATIENT
  Age: 22 Year
  Sex: Female
  Weight: 53 kg

DRUGS (1)
  1. YASMIN [Suspect]
     Dosage: ORAL
     Route: 048
     Dates: start: 20031230

REACTIONS (27)
  - ABDOMINAL PAIN [None]
  - ACNE [None]
  - ANOREXIA [None]
  - CONFUSIONAL STATE [None]
  - CONVULSION [None]
  - DEPRESSION [None]
  - DIFFICULTY IN WALKING [None]
  - DIZZINESS [None]
  - DYSARTHRIA [None]
  - EAR PAIN [None]
  - FATIGUE [None]
  - FEELING ABNORMAL [None]
  - HEADACHE [None]
  - HUNGER [None]
  - MEMORY IMPAIRMENT [None]
  - MUSCLE SPASMS [None]
  - MYDRIASIS [None]
  - PANIC ATTACK [None]
  - PIGMENTATION DISORDER [None]
  - POLLAKIURIA [None]
  - SENSATION OF PRESSURE IN EAR [None]
  - STOMACH DISCOMFORT [None]
  - SYNCOPE [None]
  - THIRST [None]
  - TREMOR [None]
  - VERTIGO [None]
  - VISION BLURRED [None]
